FAERS Safety Report 8481496-5 (Version None)
Quarter: 2012Q2

REPORT INFORMATION
  Report Type: 
  Country: None (occurrence: None)
  Receive Date: 20120625
  Receipt Date: 20120618
  Transmission Date: 20120825
  Serious: Yes (Other)
  Sender: FDA-Public Use
  Company Number: 7141358

PATIENT
  Sex: Female

DRUGS (1)
  1. LEVOTHYROXINE SODIUM [Suspect]
     Indication: PRODUCT USED FOR UNKNOWN INDICATION

REACTIONS (16)
  - FATIGUE [None]
  - GENERALISED ERYTHEMA [None]
  - TACHYCARDIA [None]
  - TREMOR [None]
  - HEADACHE [None]
  - NAUSEA [None]
  - NASOPHARYNGITIS [None]
  - AMENORRHOEA [None]
  - MUSCULAR WEAKNESS [None]
  - CONSTIPATION [None]
  - GASTRITIS [None]
  - NERVOUSNESS [None]
  - MUSCLE SPASMS [None]
  - PRURITUS [None]
  - DYSPEPSIA [None]
  - ANGINA PECTORIS [None]
